FAERS Safety Report 17697697 (Version 1)
Quarter: 2020Q2

REPORT INFORMATION
  Report Type: Spontaneous
  Country: US (occurrence: US)
  Receive Date: 20200422
  Receipt Date: 20200422
  Transmission Date: 20200714
  Serious: No
  Sender: FDA-Public Use
  Company Number: None

PATIENT
  Age: 53 Year
  Sex: Female
  Weight: 105.3 kg

DRUGS (2)
  1. METFORMIN ER 500MG TWICE DAILY [Concomitant]
     Dates: start: 20160909
  2. BYETTA [Suspect]
     Active Substance: EXENATIDE
     Indication: TYPE 2 DIABETES MELLITUS
     Route: 058
     Dates: start: 20190418, end: 20190523

REACTIONS (3)
  - Therapy cessation [None]
  - Impaired work ability [None]
  - Diarrhoea [None]

NARRATIVE: CASE EVENT DATE: 20190523
